FAERS Safety Report 13056046 (Version 2)
Quarter: 2019Q4

REPORT INFORMATION
  Report Type: Spontaneous
  Country: CA (occurrence: CA)
  Receive Date: 20161222
  Receipt Date: 20191212
  Transmission Date: 20200122
  Serious: Yes (Other)
  Sender: FDA-Public Use
  Company Number: CA-TEVA-722910USA

PATIENT
  Age: 34 Year
  Sex: Female

DRUGS (1)
  1. PLAN B [Suspect]
     Active Substance: LEVONORGESTREL
     Indication: POST COITAL CONTRACEPTION
     Route: 048

REACTIONS (4)
  - Haemorrhage [Not Recovered/Not Resolved]
  - Maternal exposure before pregnancy [Unknown]
  - Pregnancy after post coital contraception [Recovered/Resolved]
  - Abortion spontaneous [Recovered/Resolved]
